FAERS Safety Report 9471102 (Version 1)
Quarter: 2013Q3

REPORT INFORMATION
  Report Type: Spontaneous
  Country: US (occurrence: US)
  Receive Date: 20130822
  Receipt Date: 20130822
  Transmission Date: 20140515
  Serious: Yes (Hospitalization)
  Sender: FDA-Public Use
  Company Number: US-B.I. PHARMACEUTICALS,INC./RIDGEFIELD-2013-BI-25050BP

PATIENT
  Age: 57 Year
  Sex: Male
  Weight: 106 kg

DRUGS (22)
  1. SPIRIVA [Suspect]
     Indication: CHRONIC OBSTRUCTIVE PULMONARY DISEASE
     Dosage: 18 MG
     Route: 055
     Dates: start: 2011
  2. PROZAC [Concomitant]
     Indication: DEPRESSION
     Dosage: 40 MG
     Route: 048
  3. FLONASE [Concomitant]
     Indication: NASAL CONGESTION
     Dosage: FORMULATION: NASAL SPRAY STRENGTH: 2 SPRAYS; DAILY DOSE: 4 SPRAYS
     Route: 045
  4. NEUROTIN [Concomitant]
     Indication: NEUROPATHY PERIPHERAL
     Dosage: 2400 MG
     Route: 048
  5. DILAUDID [Concomitant]
     Indication: PAIN
     Dosage: 32 MG
     Route: 048
  6. LOZOL [Concomitant]
     Indication: BLOOD CHOLESTEROL INCREASED
     Dosage: 2.5 MG
     Route: 048
  7. IPRATROPIUM-ALBUTEROL [Concomitant]
     Indication: CHRONIC OBSTRUCTIVE PULMONARY DISEASE
     Dosage: FORMULATION: INALATION SOLUTION STRENGTH: 0.5-2.5 MG;
     Route: 055
  8. LEVAQUIN [Concomitant]
     Indication: INFECTION
     Route: 048
  9. METACAIN [Concomitant]
     Indication: BACK PAIN
     Dosage: FORMULATION: PATCH
     Route: 061
  10. MORPHINE ER [Concomitant]
     Indication: PAIN
     Dosage: 180 MG
     Route: 048
  11. MUSINEX [Concomitant]
     Indication: NASAL CONGESTION
     Route: 048
  12. PROAIR HFA [Concomitant]
     Indication: CHRONIC OBSTRUCTIVE PULMONARY DISEASE
     Route: 055
  13. ZOCOR [Concomitant]
     Indication: BLOOD CHOLESTEROL INCREASED
     Dosage: 20 MG
     Route: 048
  14. ALDACTONE [Concomitant]
     Indication: FLUID RETENTION
     Dosage: 50 MG
     Route: 048
  15. TRAZODONE [Concomitant]
     Indication: INSOMNIA
     Route: 048
  16. VOLTAREN GEL [Concomitant]
     Indication: PAIN
     Dosage: STRENGTH: 1 %;
     Route: 061
  17. MORPHINE PUMP [Concomitant]
     Indication: BACK PAIN
  18. ADVAIR [Concomitant]
     Indication: CHRONIC OBSTRUCTIVE PULMONARY DISEASE
     Dosage: FORMULATION: INHALATION SPRAY STRENGTH: 250/50; DAILY DOSE: 250/50
     Route: 055
  19. XANAX [Concomitant]
     Indication: ANXIETY
     Dosage: 3 MG
     Route: 048
  20. CLINADMYACIN [Concomitant]
     Route: 048
  21. FLEXERIL [Concomitant]
     Indication: BACK PAIN
     Dosage: 30 MG
     Route: 048
  22. LOFIBRA [Concomitant]
     Indication: BLOOD CHOLESTEROL INCREASED
     Dosage: 200 MG
     Route: 048

REACTIONS (2)
  - Pneumonia [Recovered/Resolved]
  - Body temperature increased [Recovered/Resolved]
